FAERS Safety Report 9388753 (Version 1)
Quarter: 2013Q3

REPORT INFORMATION
  Report Type: Spontaneous
  Country: FR (occurrence: FR)
  Receive Date: 20130708
  Receipt Date: 20130708
  Transmission Date: 20140515
  Serious: Yes (Hospitalization)
  Sender: FDA-Public Use
  Company Number: FR-GLAXOSMITHKLINE-B0904280A

PATIENT
  Age: 49 Year
  Sex: Female

DRUGS (5)
  1. AZANTAC [Suspect]
     Indication: PREMEDICATION
     Dosage: 25MG SINGLE DOSE
     Route: 042
     Dates: start: 20130222, end: 20130222
  2. POLARAMINE [Concomitant]
     Indication: PREMEDICATION
     Dosage: 2.5MG PER DAY
     Route: 042
     Dates: start: 20130222, end: 20130222
  3. METHYLPREDNISOLONE [Concomitant]
     Indication: PREMEDICATION
     Dosage: 60MG PER DAY
     Route: 042
  4. PACLITAXEL [Concomitant]
     Indication: BREAST CANCER
     Route: 065
     Dates: start: 201302
  5. HERCEPTIN [Concomitant]
     Indication: BREAST CANCER
     Route: 065
     Dates: start: 201302

REACTIONS (3)
  - Abdominal pain [Recovered/Resolved]
  - Hot flush [Recovered/Resolved]
  - Glossodynia [Recovered/Resolved]
